FAERS Safety Report 18079908 (Version 1)
Quarter: 2020Q3

REPORT INFORMATION
  Report Type: Spontaneous
  Country: JP (occurrence: JP)
  Receive Date: 20200728
  Receipt Date: 20200728
  Transmission Date: 20201103
  Serious: Yes (Other)
  Sender: FDA-Public Use
  Company Number: JP-PFIZER INC-2020285897

PATIENT

DRUGS (3)
  1. IBRANCE [Suspect]
     Active Substance: PALBOCICLIB
     Dosage: 125MG FOR 3 WEEKS FOLLOWED BY A1 WEEK  TEMPORARY DISCONTINUATION
  2. IBRANCE [Suspect]
     Active Substance: PALBOCICLIB
     Dosage: 100 MG FOR 1 WEEK FOLLOWED BY A1 WEEK  TEMPORARY DISCONTINUATION
  3. IBRANCE [Suspect]
     Active Substance: PALBOCICLIB
     Dosage: 125MG,3 WEEKS FOLLOWED BY A1 WEEK TEMPORARY DISCONTINUATION

REACTIONS (2)
  - Myelosuppression [Not Recovered/Not Resolved]
  - Tumour marker increased [Unknown]
